FAERS Safety Report 7085393-1 (Version None)
Quarter: 2010Q4

REPORT INFORMATION
  Report Type: 
  Country: None (occurrence: None)
  Receive Date: 20101105
  Receipt Date: 20101029
  Transmission Date: 20110411
  Serious: Yes (Other)
  Sender: FDA-Public Use
  Company Number: US-PFIZER INC-2010138259

PATIENT
  Sex: Male
  Weight: 186.85 kg

DRUGS (4)
  1. VIAGRA [Suspect]
     Indication: PENIS DISORDER
     Dosage: UNK, DAILY
     Route: 048
     Dates: start: 20090101, end: 20100101
  2. IBUPROFEN [Concomitant]
     Indication: HEADACHE
     Dosage: 200 MG, 6X/DAY
     Route: 048
  3. IBUPROFEN [Concomitant]
     Indication: ARTHROPATHY
  4. POTASSIUM GLUCONATE [Concomitant]
     Indication: SUPPLEMENTATION THERAPY
     Dosage: UNK, 3X/DAY

REACTIONS (4)
  - INCORRECT DOSE ADMINISTERED [None]
  - PENILE PAIN [None]
  - PENIS DISORDER [None]
  - TESTICULAR SWELLING [None]
